FAERS Safety Report 5366739-9 (Version None)
Quarter: 2007Q2

REPORT INFORMATION
  Report Type: 
  Country: None (occurrence: None)
  Receive Date: 20070622
  Receipt Date: 20060719
  Transmission Date: 20071010
  Serious: No
  Sender: FDA-Public Use
  Company Number: US-ASTRAZENECA-2006UW14736

PATIENT
  Age: 71 Year
  Sex: Female
  Weight: 60.8 kg

DRUGS (4)
  1. RHINOCORT [Suspect]
     Indication: INFLUENZA
     Route: 045
     Dates: start: 20060713
  2. TEMODAR [Concomitant]
  3. SYNTHROID [Concomitant]
  4. ZOFRAN [Concomitant]

REACTIONS (2)
  - ERYTHEMA [None]
  - FEELING HOT [None]
